FAERS Safety Report 21447881 (Version 2)
Quarter: 2023Q1

REPORT INFORMATION
  Report Type: Spontaneous
  Country: US (occurrence: US)
  Receive Date: 20221012
  Receipt Date: 20230131
  Transmission Date: 20230418
  Serious: No
  Sender: FDA-Public Use
  Company Number: US-009507513-2209USA006468

PATIENT
  Age: 64 Year
  Sex: Female

DRUGS (1)
  1. KEYTRUDA [Suspect]
     Active Substance: PEMBROLIZUMAB
     Indication: Cervix carcinoma
     Dosage: ROUTE OF ADMINISTRATION: INFUSION
     Dates: end: 202207

REACTIONS (2)
  - Rash macular [Recovered/Resolved]
  - Pigmentation disorder [Unknown]

NARRATIVE: CASE EVENT DATE: 20220601
